FAERS Safety Report 23852427 (Version 1)
Quarter: 2024Q2

REPORT INFORMATION
  Report Type: Spontaneous
  Country: US (occurrence: None)
  Receive Date: 20240513
  Receipt Date: 20240513
  Transmission Date: 20240716
  Serious: Yes (Death, Life-Threatening, Hospitalization)
  Sender: FDA-Public Use
  Company Number: None

PATIENT
  Age: 67 Year
  Sex: Female

DRUGS (1)
  1. YESCARTA [Suspect]
     Active Substance: AXICABTAGENE CILOLEUCEL
     Indication: Diffuse large B-cell lymphoma
     Dates: start: 20240409, end: 20240409

REACTIONS (3)
  - Immune effector cell-associated neurotoxicity syndrome [None]
  - Cardiopulmonary failure [None]
  - Acute respiratory failure [None]

NARRATIVE: CASE EVENT DATE: 20240416
